FAERS Safety Report 6028631-6 (Version None)
Quarter: 2009Q1

REPORT INFORMATION
  Report Type: 
  Country: None (occurrence: None)
  Receive Date: 20090106
  Receipt Date: 20090102
  Transmission Date: 20090719
  Serious: Yes (Hospitalization)
  Sender: FDA-Public Use
  Company Number: PHHO2008US14376

PATIENT
  Sex: Male
  Weight: 78.6 kg

DRUGS (2)
  1. CERTICAN [Suspect]
     Indication: HEART TRANSPLANT
     Dosage: 0.75 MG, BID
     Route: 048
     Dates: start: 20081109
  2. NEORAL [Concomitant]
     Indication: HEART TRANSPLANT
     Dosage: 150 MG, BID
     Route: 048
     Dates: start: 20081109

REACTIONS (2)
  - PERICARDIAL DRAINAGE [None]
  - PERICARDIAL EFFUSION [None]
